FAERS Safety Report 8508677 (Version 4)
Quarter: 2014Q1

REPORT INFORMATION
  Report Type: Spontaneous
  Country: US (occurrence: US)
  Receive Date: 20120412
  Receipt Date: 20140110
  Transmission Date: 20141002
  Serious: No
  Sender: FDA-Public Use
  Company Number: US-ASTRAZENECA-2011SE26318

PATIENT
  Age: 56 Year
  Sex: Female
  Weight: 70.3 kg

DRUGS (6)
  1. NEXIUM [Suspect]
     Indication: GASTROOESOPHAGEAL REFLUX DISEASE
     Route: 048
     Dates: start: 2001, end: 201311
  2. NEXIUM [Suspect]
     Indication: GASTROOESOPHAGEAL REFLUX DISEASE
     Route: 048
  3. IBUPROFEN [Concomitant]
     Indication: NECK PAIN
  4. SYNTHROID [Concomitant]
     Indication: THYROID DISORDER
  5. HORMONES [Concomitant]
  6. HIGH BLOOD PRESSURE MEDICATION [Concomitant]

REACTIONS (8)
  - Dyspepsia [Unknown]
  - Gastrooesophageal reflux disease [Unknown]
  - Discomfort [Unknown]
  - Road traffic accident [Recovered/Resolved]
  - Insomnia [Unknown]
  - Drug dose omission [Unknown]
  - Intentional drug misuse [Not Recovered/Not Resolved]
  - Drug ineffective [Not Recovered/Not Resolved]
